FAERS Safety Report 7385286-6 (Version None)
Quarter: 2011Q1

REPORT INFORMATION
  Report Type: 
  Country: None (occurrence: None)
  Receive Date: 20110330
  Receipt Date: 20100407
  Transmission Date: 20110831
  Serious: No
  Sender: FDA-Public Use
  Company Number: US-MYLANLABS-2010S1006092

PATIENT
  Sex: Female

DRUGS (1)
  1. EMSAM [Suspect]

REACTIONS (3)
  - HYPOAESTHESIA [None]
  - SEDATION [None]
  - DYSARTHRIA [None]
